APPROVED DRUG PRODUCT: DOXYCYCLINE HYCLATE
Active Ingredient: DOXYCYCLINE HYCLATE
Strength: EQ 50MG BASE
Dosage Form/Route: TABLET;ORAL
Application: A062269 | Product #003 | TE Code: AB
Applicant: EPIC PHARMA LLC
Approved: Oct 5, 1983 | RLD: No | RS: No | Type: RX